FAERS Safety Report 8299672-3 (Version None)
Quarter: 2012Q2

REPORT INFORMATION
  Report Type: 
  Country: None (occurrence: None)
  Receive Date: 20120419
  Receipt Date: 20120413
  Transmission Date: 20120825
  Serious: Yes (Hospitalization, Other)
  Sender: FDA-Public Use
  Company Number: US-ELI_LILLY_AND_COMPANY-US201104006201

PATIENT
  Sex: Female

DRUGS (2)
  1. FORTEO [Suspect]
     Indication: OSTEOPOROSIS
     Dosage: 20 UG, QD
     Dates: start: 20091101
  2. FORTEO [Suspect]
     Dosage: 20 UG, QD
     Route: 065
     Dates: end: 20120101

REACTIONS (11)
  - LOOSE TOOTH [None]
  - TINNITUS [None]
  - INCORRECT DRUG ADMINISTRATION DURATION [None]
  - DRY MOUTH [None]
  - MUSCLE SPASMS [None]
  - TONGUE DISCOLOURATION [None]
  - MALAISE [None]
  - NAUSEA [None]
  - DIZZINESS [None]
  - FEELING DRUNK [None]
  - GLIOBLASTOMA MULTIFORME [None]
